FAERS Safety Report 4600221-9 (Version None)
Quarter: 2005Q1

REPORT INFORMATION
  Report Type: 
  Country: None (occurrence: None)
  Receive Date: 20050303
  Receipt Date: 20050303
  Transmission Date: 20050727
  Serious: No
  Sender: FDA-Public Use
  Company Number: None

PATIENT
  Age: 34 Year
  Sex: Female
  Weight: 62.5964 kg

DRUGS (2)
  1. DEPO-PROVERA [Suspect]
     Indication: MENORRHAGIA
     Dosage: 1 INJECTION    EVERY 3 MONTHS
     Dates: start: 19970515, end: 19980810
  2. PREMARIN [Concomitant]

REACTIONS (11)
  - BREAST TENDERNESS [None]
  - CONDITION AGGRAVATED [None]
  - GINGIVAL PAIN [None]
  - HEART RATE IRREGULAR [None]
  - HORMONE LEVEL ABNORMAL [None]
  - MENORRHAGIA [None]
  - MIGRAINE [None]
  - MITRAL VALVE PROLAPSE [None]
  - MUSCLE SPASMS [None]
  - NECK PAIN [None]
  - VISION BLURRED [None]
